FAERS Safety Report 7053424-0 (Version None)
Quarter: 2010Q4

REPORT INFORMATION
  Report Type: 
  Country: None (occurrence: None)
  Receive Date: 20101013
  Receipt Date: 20101008
  Transmission Date: 20110411
  Serious: Yes (Hospitalization, Other)
  Sender: FDA-Public Use
  Company Number: 2010SP050847

PATIENT
  Age: 49 Year
  Sex: Female
  Weight: 60 kg

DRUGS (2)
  1. ORMIGREIN (ORMIGREIN 01755201/) [Suspect]
     Indication: MIGRAINE
     Dosage: PO
     Route: 048
     Dates: start: 20060101, end: 20100901
  2. ERGOTAMINE [Concomitant]

REACTIONS (3)
  - DRUG DEPENDENCE [None]
  - MIGRAINE [None]
  - NO THERAPEUTIC RESPONSE [None]
